FAERS Safety Report 8332599-7 (Version None)
Quarter: 2012Q2

REPORT INFORMATION
  Report Type: 
  Country: None (occurrence: None)
  Receive Date: 20120503
  Receipt Date: 20120425
  Transmission Date: 20120825
  Serious: Yes (Hospitalization, Other)
  Sender: FDA-Public Use
  Company Number: US-BAYER-201034331NA

PATIENT
  Age: 40 Year
  Sex: Female
  Weight: 50 kg

DRUGS (7)
  1. YAZ [Suspect]
     Indication: PREMENSTRUAL SYNDROME
     Route: 048
     Dates: start: 20070401, end: 20070901
  2. AXERT [Concomitant]
     Indication: MIGRAINE
  3. CELEXA [Concomitant]
  4. AMBIEN [Concomitant]
  5. LEXAPRO [Concomitant]
     Indication: PREMENSTRUAL SYNDROME
  6. TOPAMAX [Concomitant]
  7. COMBUNOX [Concomitant]
     Dosage: 5/400 MG EVERY 6 HOURS AS NEEDED

REACTIONS (6)
  - PULMONARY EMBOLISM [None]
  - DEEP VEIN THROMBOSIS [None]
  - PAIN [None]
  - HYPERKALAEMIA [None]
  - INJURY [None]
  - OEDEMA PERIPHERAL [None]
